FAERS Safety Report 9122663 (Version 1)
Quarter: 2013Q1

REPORT INFORMATION
  Report Type: Spontaneous
  Country: US (occurrence: None)
  Receive Date: 20130225
  Receipt Date: 20130225
  Transmission Date: 20140127
  Serious: Yes (Hospitalization)
  Sender: FDA-Public Use
  Company Number: None

PATIENT
  Age: 65 Year
  Sex: Female
  Weight: 59.4 kg

DRUGS (13)
  1. TAMIFLU [Suspect]
     Indication: INFLUENZA VIRUS TEST POSITIVE
     Dosage: 75 MG Q 12 HRS PO
     Route: 048
     Dates: start: 20130220, end: 20130221
  2. ALLOPURINOL [Concomitant]
  3. ASPIRIN [Concomitant]
  4. DILTIAZEM CD [Concomitant]
  5. FUROSEMIDE [Concomitant]
  6. LEVOTHYROXINE [Concomitant]
  7. POTASSIUM [Concomitant]
  8. ROSUVASTATIN [Concomitant]
  9. WARFARIN [Concomitant]
  10. METRONIDAZOLE [Concomitant]
  11. LEVOFLOXACIN [Concomitant]
  12. MAGNESIUM OXIDE [Concomitant]
  13. CEFTRIAXONE [Concomitant]

REACTIONS (4)
  - Confusional state [None]
  - Fear [None]
  - Restlessness [None]
  - Screaming [None]
